FAERS Safety Report 10232493 (Version 1)
Quarter: 2014Q2

REPORT INFORMATION
  Report Type: Spontaneous
  Country: US (occurrence: US)
  Receive Date: 20140612
  Receipt Date: 20140612
  Transmission Date: 20141212
  Serious: Yes (Other)
  Sender: FDA-Public Use
  Company Number: US-JNJFOC-20140600465

PATIENT
  Sex: Male
  Weight: 65.32 kg

DRUGS (3)
  1. INVEGA SUSTENNA [Suspect]
     Indication: SCHIZOPHRENIA
     Route: 030
     Dates: start: 201301
  2. SAPHRIS [Suspect]
     Indication: SCHIZOPHRENIA
     Route: 065
     Dates: start: 2014
  3. DEPAKOTE [Concomitant]
     Route: 065
     Dates: start: 201301

REACTIONS (10)
  - Hepatic steatosis [Not Recovered/Not Resolved]
  - Weight increased [Not Recovered/Not Resolved]
  - Urine analysis abnormal [Unknown]
  - Hunger [Recovered/Resolved]
  - Blood cholesterol increased [Not Recovered/Not Resolved]
  - Blood prolactin increased [Not Recovered/Not Resolved]
  - Pollakiuria [Not Recovered/Not Resolved]
  - Diarrhoea [Unknown]
  - Thirst [Not Recovered/Not Resolved]
  - Drug effect incomplete [Unknown]
